FAERS Safety Report 22278083 (Version 1)
Quarter: 2023Q2

REPORT INFORMATION
  Report Type: Report from Study
  Country: US (occurrence: US)
  Receive Date: 20230503
  Receipt Date: 20230503
  Transmission Date: 20230721
  Serious: Yes (Other)
  Sender: FDA-Public Use
  Company Number: US-ABBVIE-4746307

PATIENT
  Age: 94 Year
  Sex: Female

DRUGS (1)
  1. SKYRIZI [Suspect]
     Active Substance: RISANKIZUMAB-RZAA
     Indication: Psoriasis
     Route: 058
     Dates: start: 20220627

REACTIONS (4)
  - Hip fracture [Recovering/Resolving]
  - Weight bearing difficulty [Unknown]
  - Fall [Unknown]
  - Grief reaction [Not Recovered/Not Resolved]

NARRATIVE: CASE EVENT DATE: 20230306
